FAERS Safety Report 12136984 (Version 1)
Quarter: 2016Q1

REPORT INFORMATION
  Report Type: Spontaneous
  Country: US (occurrence: US)
  Receive Date: 20160302
  Receipt Date: 20160302
  Transmission Date: 20160526
  Serious: No
  Sender: FDA-Public Use
  Company Number: US-PERRIGO-15US006161

PATIENT
  Age: 78 Year
  Sex: Female
  Weight: 58.96 kg

DRUGS (3)
  1. GOOD NEIGHBOR PHARMACY ANTI DIARRHEAL [Suspect]
     Active Substance: LOPERAMIDE HYDROCHLORIDE
     Indication: DIARRHOEA
     Dosage: 2 MG, SINGLE
     Route: 048
     Dates: start: 20150608, end: 20150608
  2. GOOD NEIGHBOR PHARMACY ANTI DIARRHEAL [Suspect]
     Active Substance: LOPERAMIDE HYDROCHLORIDE
     Dosage: 4 MG, QD
     Route: 048
     Dates: start: 20150609, end: 20150612
  3. ANTIHYPERTENSIVES [Concomitant]
     Active Substance: UNSPECIFIED INGREDIENT
     Indication: HYPERTENSION
     Dosage: UNK
     Route: 065

REACTIONS (3)
  - Drug ineffective [Unknown]
  - Incorrect dose administered [Recovered/Resolved]
  - Inappropriate schedule of drug administration [Recovered/Resolved]

NARRATIVE: CASE EVENT DATE: 20150608
